FAERS Safety Report 9257422 (Version 4)
Quarter: 2013Q3

REPORT INFORMATION
  Report Type: Spontaneous
  Country: US (occurrence: None)
  Receive Date: 20130423
  Receipt Date: 20130813
  Transmission Date: 20140515
  Serious: Yes (Hospitalization)
  Sender: FDA-Public Use
  Company Number: ACO_35573_2013

PATIENT
  Age: 55 Year
  Sex: Female
  Weight: 87.1 kg

DRUGS (8)
  1. AMPYRA [Suspect]
     Indication: GAIT DISTURBANCE
     Route: 048
     Dates: end: 20130401
  2. AMPYRA [Suspect]
     Indication: MULTIPLE SCLEROSIS
     Route: 048
     Dates: end: 20130401
  3. CLONAZEPAM (CLONAZEPAM) (CLONAZEPAM) [Concomitant]
  4. LYRICA (PREGABALIN) [Concomitant]
  5. PAROXETINE (PAROXETINE) [Concomitant]
  6. VICODIN (HYDROCODONE BITARTRATE, PARACETAMOL) [Concomitant]
  7. REQUIP (ROPINIROLE HYDROCHLORIDE) [Concomitant]
  8. SEROQUEL (QUETIAPINE FUMARATE) [Concomitant]

REACTIONS (2)
  - Convulsion [None]
  - Muscle rupture [None]
